FAERS Safety Report 12275725 (Version 5)
Quarter: 2016Q2

REPORT INFORMATION
  Report Type: Spontaneous
  Country: GB (occurrence: GB)
  Receive Date: 20160418
  Receipt Date: 20160617
  Transmission Date: 20160815
  Serious: Yes (Hospitalization, Other)
  Sender: FDA-Public Use
  Company Number: GB-ROCHE-1686339

PATIENT
  Sex: Female

DRUGS (8)
  1. CARBOPLATIN. [Concomitant]
     Active Substance: CARBOPLATIN
     Route: 042
  2. GEMCITABINE [Concomitant]
     Active Substance: GEMCITABINE\GEMCITABINE HYDROCHLORIDE
     Route: 042
  3. GEMCITABINE [Concomitant]
     Active Substance: GEMCITABINE\GEMCITABINE HYDROCHLORIDE
     Route: 042
  4. CHLORPHENAMINE [Concomitant]
     Active Substance: CHLORPHENIRAMINE MALEATE
     Route: 065
  5. CLOPIDOGREL [Concomitant]
     Active Substance: CLOPIDOGREL BISULFATE
  6. AVASTIN [Suspect]
     Active Substance: BEVACIZUMAB
     Indication: PRODUCT USED FOR UNKNOWN INDICATION
     Dosage: DATE OF LAST DOSE: 23/DEC/2015
     Route: 042
  7. NEULASTA [Concomitant]
     Active Substance: PEGFILGRASTIM
  8. ONDANSETRON [Concomitant]
     Active Substance: ONDANSETRON

REACTIONS (29)
  - Malaise [Unknown]
  - Nausea [Unknown]
  - Constipation [Not Recovered/Not Resolved]
  - Asthenia [Unknown]
  - Depressed mood [Unknown]
  - Haemorrhoids [Not Recovered/Not Resolved]
  - Pruritus [Recovered/Resolved]
  - Neutrophil count decreased [Unknown]
  - Transfusion [Unknown]
  - Diarrhoea [Not Recovered/Not Resolved]
  - Pain in extremity [Unknown]
  - White blood cell count decreased [Unknown]
  - Dizziness [Unknown]
  - Sleep disorder [Unknown]
  - Oral pain [Unknown]
  - Pollakiuria [Unknown]
  - Alopecia [Unknown]
  - Anal fissure [Not Recovered/Not Resolved]
  - Anal pruritus [Recovered/Resolved]
  - Faeces discoloured [Unknown]
  - Platelet count decreased [Unknown]
  - Fatigue [Not Recovered/Not Resolved]
  - Fall [Unknown]
  - Dry skin [Not Recovered/Not Resolved]
  - Anal haemorrhage [Unknown]
  - Haemoglobin decreased [Unknown]
  - Pain in jaw [Unknown]
  - Loose tooth [Unknown]
  - Protein urine present [Unknown]
